FAERS Safety Report 9026571 (Version 2)
Quarter: 2013Q1

REPORT INFORMATION
  Report Type: Spontaneous
  Country: US (occurrence: None)
  Receive Date: 20130107
  Receipt Date: 20130128
  Transmission Date: 20140127
  Serious: Yes (Other)
  Sender: FDA-Public Use
  Company Number: CC12-1491

PATIENT
  Age: 47 Year
  Sex: Female
  Weight: 120.2 kg

DRUGS (4)
  1. KETOCONAZOLE [Suspect]
     Dates: start: 201208
  2. ALBUTEROL [Concomitant]
  3. SYMBICORT [Concomitant]
  4. CLARITIN [Concomitant]

REACTIONS (3)
  - Dyspnoea [None]
  - Asthma [None]
  - Exposure via inhalation [None]
